FAERS Safety Report 6510574-2 (Version None)
Quarter: 2009Q4

REPORT INFORMATION
  Report Type: 
  Country: None (occurrence: None)
  Receive Date: 20091222
  Receipt Date: 20091029
  Transmission Date: 20100525
  Serious: No
  Sender: FDA-Public Use
  Company Number: US-ASTRAZENECA-2009SE23505

PATIENT
  Age: 81 Year
  Sex: Female
  Weight: 90.7 kg

DRUGS (6)
  1. CRESTOR [Suspect]
     Route: 048
     Dates: start: 20091026
  2. EVISTA [Concomitant]
  3. NORVASC [Concomitant]
  4. CALCIUM PLUS VITAMIN D [Concomitant]
  5. THYROID TAB [Concomitant]
  6. FLAX SEED [Concomitant]

REACTIONS (2)
  - BACK PAIN [None]
  - DRY MOUTH [None]
